FAERS Safety Report 19106860 (Version 3)
Quarter: 2021Q2

REPORT INFORMATION
  Report Type: Report from Study
  Country: EG (occurrence: EG)
  Receive Date: 20210408
  Receipt Date: 20210527
  Transmission Date: 20210717
  Serious: Yes (Other)
  Sender: FDA-Public Use
  Company Number: EG-REGENERON PHARMACEUTICALS, INC.-2021-26097

PATIENT

DRUGS (6)
  1. ATACAND [Concomitant]
     Active Substance: CANDESARTAN CILEXETIL
     Indication: HYPERTENSION
     Dosage: 16 MG, QD (BEFORE BREAKFAST)
  2. DILATROL [Concomitant]
     Indication: HYPERTENSION
     Dosage: 25 MG, QD
  3. EYLEA [Suspect]
     Active Substance: AFLIBERCEPT
     Indication: MACULAR OEDEMA
     Dosage: UNK
     Route: 031
     Dates: start: 201905
  4. EYLEA [Suspect]
     Active Substance: AFLIBERCEPT
     Dosage: TOTAL NUMBER OF EYLEA INJECTIONS IS 18 (11 RIGHT EYE + 7 LEFT EYE), THE LAST ONE WAS ON 24?DEC?20
     Route: 031
     Dates: start: 20201224, end: 20201224
  5. LUCENTIS [Suspect]
     Active Substance: RANIBIZUMAB
     Indication: PRODUCT USED FOR UNKNOWN INDICATION
     Dosage: ONCE IN THE RIGHT EYE (AFTER THE 7TH EYLEA INJECTION IN THIS EYE)
     Dates: start: 20201012, end: 20201012
  6. EYLEA [Suspect]
     Active Substance: AFLIBERCEPT
     Dosage: INJECTED EYLEA IN THE RIGHT EYE
     Route: 031
     Dates: start: 20201203, end: 20201203

REACTIONS (5)
  - Retinal fibrosis [Not Recovered/Not Resolved]
  - Cataract [Recovered/Resolved]
  - Vision blurred [Recovered/Resolved]
  - Macular oedema [Recovering/Resolving]
  - Drug ineffective [Not Recovered/Not Resolved]

NARRATIVE: CASE EVENT DATE: 20191231
